FAERS Safety Report 9387794 (Version 2)
Quarter: 2013Q3

REPORT INFORMATION
  Report Type: Spontaneous
  Country: DE (occurrence: None)
  Receive Date: 20130703
  Receipt Date: 20130828
  Transmission Date: 20140515
  Serious: Yes (Hospitalization)
  Sender: FDA-Public Use
  Company Number: TPG2013A00729

PATIENT
  Age: 68 Year
  Sex: Male

DRUGS (2)
  1. EDARBI [Suspect]
     Indication: ESSENTIAL HYPERTENSION
     Dosage: 20 MG ( 20 MG, 1 IN 1 D)
     Route: 048
     Dates: start: 20120824, end: 20121001
  2. PLATELET AGGREGATION INHIBITORS [Concomitant]

REACTIONS (2)
  - Vascular dementia [None]
  - Confusional state [None]
